FAERS Safety Report 23948850 (Version 1)
Quarter: 2024Q2

REPORT INFORMATION
  Report Type: Spontaneous
  Country: US (occurrence: US)
  Receive Date: 20240607
  Receipt Date: 20240607
  Transmission Date: 20240716
  Serious: Yes (Death)
  Sender: FDA-Public Use
  Company Number: US-ROCHE-2976963

PATIENT
  Sex: Male

DRUGS (5)
  1. VALGANCICLOVIR [Suspect]
     Active Substance: VALGANCICLOVIR
     Indication: Liver transplant
     Dosage: 50 MG/ML SOLN, TAKE 18 ML ONE TIME DAILY
  2. MYCOPHENOLIC ACID [Suspect]
     Active Substance: MYCOPHENOLIC ACID
  3. MYCOPHENOLIC ACID [Suspect]
     Active Substance: MYCOPHENOLIC ACID
  4. TACROLIMUS [Suspect]
     Active Substance: TACROLIMUS
  5. PREDNISONE [Suspect]
     Active Substance: PREDNISONE

REACTIONS (3)
  - Squamous cell carcinoma of head and neck [Fatal]
  - Fatigue [Unknown]
  - Dysphagia [Unknown]
